FAERS Safety Report 17355243 (Version 1)
Quarter: 2020Q1

REPORT INFORMATION
  Report Type: Spontaneous
  Country: US (occurrence: US)
  Receive Date: 20200116
  Receipt Date: 20200116
  Transmission Date: 20200409
  Serious: No
  Sender: FDA-Public Use
  Company Number: None

PATIENT
  Age: 32 Year
  Sex: Female

DRUGS (1)
  1. TRIKAFTA [Suspect]
     Active Substance: ELEXACAFTOR\IVACAFTOR\TEZACAFTOR
     Dosage: ?          OTHER FREQUENCY:QAM;?
     Route: 048
     Dates: start: 20191227

REACTIONS (3)
  - Product dose omission [None]
  - Cough [None]
  - Pneumonia [None]

NARRATIVE: CASE EVENT DATE: 20200101
